FAERS Safety Report 22322663 (Version 1)
Quarter: 2023Q2

REPORT INFORMATION
  Report Type: Spontaneous
  Country: US (occurrence: None)
  Receive Date: 20230516
  Receipt Date: 20230516
  Transmission Date: 20230722
  Serious: No
  Sender: FDA-Public Use
  Company Number: AXS2022-168

PATIENT
  Sex: Female

DRUGS (19)
  1. SUNOSI [Suspect]
     Active Substance: SOLRIAMFETOL
     Indication: Hypersomnia
     Route: 048
  2. VYVANSE [Suspect]
     Active Substance: LISDEXAMFETAMINE DIMESYLATE
     Indication: Attention deficit hyperactivity disorder
     Route: 048
  3. MODAFINIL [Suspect]
     Active Substance: MODAFINIL
     Indication: Hypersomnia
  4. UNSPECIFIED INGREDIENT [Suspect]
     Active Substance: UNSPECIFIED INGREDIENT
     Indication: Hypersomnia
  5. STRATTERA [Suspect]
     Active Substance: ATOMOXETINE HYDROCHLORIDE
     Indication: Hypersomnia
  6. CONCERTA [Suspect]
     Active Substance: METHYLPHENIDATE HYDROCHLORIDE
     Indication: Hypersomnia
  7. REMERON [Concomitant]
     Active Substance: MIRTAZAPINE
     Indication: Insomnia
     Route: 048
  8. SUBUTEX [Concomitant]
     Active Substance: BUPRENORPHINE HYDROCHLORIDE
     Indication: Product used for unknown indication
     Route: 048
  9. PRISTIQ EXTENDED-RELEASE [Concomitant]
     Active Substance: DESVENLAFAXINE SUCCINATE
     Indication: Product used for unknown indication
     Route: 048
  10. ANTABUSE [Concomitant]
     Active Substance: DISULFIRAM
     Indication: Product used for unknown indication
     Route: 048
  11. SINGULAIR [Concomitant]
     Active Substance: MONTELUKAST SODIUM
     Indication: Product used for unknown indication
     Route: 048
  12. PRILOSEC [Concomitant]
     Active Substance: OMEPRAZOLE MAGNESIUM
     Indication: Product used for unknown indication
     Route: 048
  13. Retin [Concomitant]
     Indication: Product used for unknown indication
     Dosage: APPLY A THIN LAYER TO THE FACE AT BEDTIME
     Route: 061
  14. SIMETHICONE (DIMETHICONE) [Concomitant]
     Active Substance: DIMETHICONE
     Indication: Flatulence
     Dosage: CHEW AND SWALLOW 1 TABLET THREE TIMES DAILY AS NEEDED FOR GAS
     Route: 048
  15. CHANTIX [Concomitant]
     Active Substance: VARENICLINE TARTRATE
     Indication: Product used for unknown indication
     Dosage: TAKE 1 TABLET TWLCE DAILY AFTER COMPLETING 0.5MG TABLETS
     Route: 048
  16. VENTOLIN HFA [Concomitant]
     Active Substance: ALBUTEROL SULFATE
     Indication: Dyspnoea
     Dosage: INHALE 1 TO 2 PUFFS BY MOUTH EVERY 4 HOURS AS NEEDED FOR SHORTNESS OF BREATH , WHEEZING OR COUGHLNG
     Route: 048
  17. VENTOLIN HFA [Concomitant]
     Active Substance: ALBUTEROL SULFATE
     Indication: Wheezing
  18. VENTOLIN HFA [Concomitant]
     Active Substance: ALBUTEROL SULFATE
     Indication: Cough
  19. NEURONTIN [Concomitant]
     Active Substance: GABAPENTIN
     Indication: Euphoric mood
     Route: 048

REACTIONS (1)
  - Treatment failure [Unknown]
